FAERS Safety Report 10215650 (Version 2)
Quarter: 2014Q4

REPORT INFORMATION
  Report Type: Spontaneous
  Country: MY (occurrence: MY)
  Receive Date: 20140604
  Receipt Date: 20141118
  Transmission Date: 20150528
  Serious: Yes (Other)
  Sender: FDA-Public Use
  Company Number: MY-PFIZER INC-2014149701

PATIENT
  Age: 55 Year
  Sex: Male

DRUGS (2)
  1. DILANTIN [Suspect]
     Active Substance: PHENYTOIN
     Indication: PROPHYLAXIS
     Dosage: 750 MG, SINGLE
     Route: 042
     Dates: start: 20121016, end: 20121016
  2. DILANTIN [Suspect]
     Active Substance: PHENYTOIN
     Indication: BASAL GANGLIA HAEMORRHAGE

REACTIONS (2)
  - Rash generalised [Not Recovered/Not Resolved]
  - Generalised oedema [Not Recovered/Not Resolved]

NARRATIVE: CASE EVENT DATE: 20121016
